FAERS Safety Report 12657761 (Version 1)
Quarter: 2016Q3

REPORT INFORMATION
  Report Type: Report from Study
  Country: US (occurrence: US)
  Receive Date: 20160816
  Receipt Date: 20160816
  Transmission Date: 20161109
  Serious: Yes (Other)
  Sender: FDA-Public Use
  Company Number: US-ACTELION-A-NJ2016-140647

PATIENT
  Age: 71 Year
  Sex: Female

DRUGS (1)
  1. OPSUMIT [Suspect]
     Active Substance: MACITENTAN
     Indication: PULMONARY ARTERIAL HYPERTENSION
     Dosage: 10 MG, QD
     Route: 048
     Dates: start: 20160708

REACTIONS (5)
  - Altered state of consciousness [Unknown]
  - Vascular device user [Unknown]
  - Musculoskeletal stiffness [Unknown]
  - Petit mal epilepsy [Unknown]
  - Pneumonitis [Unknown]
